FAERS Safety Report 19174352 (Version 3)
Quarter: 2021Q2

REPORT INFORMATION
  Report Type: Spontaneous
  Country: US (occurrence: US)
  Receive Date: 20210423
  Receipt Date: 20210512
  Transmission Date: 20210717
  Serious: Yes (Other)
  Sender: FDA-Public Use
  Company Number: US-ALXN-A202104819

PATIENT
  Sex: Male

DRUGS (2)
  1. PENICILLIN                         /00000901/ [Concomitant]
     Active Substance: PENICILLIN G
     Indication: PRODUCT USED FOR UNKNOWN INDICATION
     Route: 065
  2. SOLIRIS [Suspect]
     Active Substance: ECULIZUMAB
     Indication: PAROXYSMAL NOCTURNAL HAEMOGLOBINURIA
     Route: 065

REACTIONS (5)
  - Bone marrow failure [Unknown]
  - Full blood count abnormal [Unknown]
  - Aplastic anaemia [Unknown]
  - Blood lactate dehydrogenase increased [Unknown]
  - Blood glucose abnormal [Unknown]

NARRATIVE: CASE EVENT DATE: 20210325
